FAERS Safety Report 4968401-0 (Version None)
Quarter: 2006Q2

REPORT INFORMATION
  Report Type: 
  Country: None (occurrence: None)
  Receive Date: 20060410
  Receipt Date: 20060329
  Transmission Date: 20061013
  Serious: Yes (Hospitalization)
  Sender: FDA-Public Use
  Company Number: US-ABBOTT-06P-163-0329345-00

PATIENT
  Sex: Female
  Weight: 59.928 kg

DRUGS (16)
  1. HUMIRA [Suspect]
     Indication: RHEUMATOID ARTHRITIS
     Route: 058
     Dates: start: 20030529, end: 20041001
  2. HUMIRA [Suspect]
     Route: 058
     Dates: end: 20050501
  3. HUMIRA [Suspect]
     Route: 058
     Dates: end: 20051201
  4. THEOPHYLLINE [Concomitant]
     Indication: ASTHMA
     Route: 048
  5. GABAPENTIN [Concomitant]
     Indication: NEUROPATHY
     Route: 048
  6. BUPROPION HYDROCHLORIDE [Concomitant]
     Indication: DEPRESSION
     Route: 048
  7. ASCORBIC ACID [Concomitant]
     Indication: VITAMIN SUPPLEMENTATION
     Route: 048
  8. ACETYLSALICYLIC ACID SRT [Concomitant]
     Indication: THROMBOSIS PROPHYLAXIS
     Route: 048
  9. CALCIUM GLUCONATE [Concomitant]
     Indication: OSTEOPOROSIS
     Route: 048
  10. FEXOFENADINE HYDROCHLORIDE [Concomitant]
     Indication: HYPERSENSITIVITY
     Route: 048
  11. SPYREVA [Concomitant]
     Indication: ASTHMA
     Route: 055
  12. COMBIVENT [Concomitant]
     Indication: ASTHMA
     Route: 055
  13. ALPRAZOLAM [Concomitant]
     Indication: INSOMNIA
     Route: 048
  14. PREDNISONE [Concomitant]
     Indication: RHEUMATOID ARTHRITIS
     Route: 048
  15. OMEPRAZOLE [Concomitant]
     Indication: GASTROOESOPHAGEAL REFLUX DISEASE
     Route: 048
  16. PROPACET 100 [Concomitant]
     Indication: PAIN
     Route: 048

REACTIONS (7)
  - CYSTOCELE [None]
  - INJECTION SITE REACTION [None]
  - POLYNEUROPATHY [None]
  - PYELONEPHRITIS [None]
  - RENAL FAILURE CHRONIC [None]
  - URINARY TRACT INFECTION BACTERIAL [None]
  - URINARY TRACT INFECTION PSEUDOMONAL [None]
